FAERS Safety Report 4358162-0 (Version None)
Quarter: 2004Q2

REPORT INFORMATION
  Report Type: 
  Country: None (occurrence: None)
  Receive Date: 20040510
  Receipt Date: 20040430
  Transmission Date: 20050107
  Serious: Yes (Death)
  Sender: FDA-Public Use
  Company Number: US-JNJFOC-20040402742

PATIENT
  Age: 76 Year
  Sex: Male

DRUGS (2)
  1. RISPERDAL [Suspect]
     Dosage: 1 MG, 3 IN 1 DAY, ORAL
     Route: 048
     Dates: start: 20010901
  2. ZOLOFT [Concomitant]

REACTIONS (1)
  - MYOCARDIAL INFARCTION [None]
